FAERS Safety Report 7774557-7 (Version None)
Quarter: 2011Q3

REPORT INFORMATION
  Report Type: 
  Country: None (occurrence: None)
  Receive Date: 20110923
  Receipt Date: 20110922
  Transmission Date: 20111222
  Serious: Yes (Life-Threatening, Other)
  Sender: FDA-Public Use
  Company Number: FR-ABBOTT-11P-056-0848798-00

PATIENT
  Sex: Female

DRUGS (4)
  1. AMOXICILLIN [Suspect]
  2. SERETIDE [Concomitant]
     Indication: ASTHMA
  3. VENTOLIN [Concomitant]
     Indication: ASTHMA
  4. HUMIRA [Suspect]
     Indication: ENTEROCOLITIS HAEMORRHAGIC
     Route: 058
     Dates: start: 20100525, end: 20110701

REACTIONS (5)
  - MENINGITIS LISTERIA [None]
  - RENAL FAILURE ACUTE [None]
  - CRYSTALLURIA [None]
  - COMA [None]
  - NEPHROPATHY TOXIC [None]
